FAERS Safety Report 23881422 (Version 2)
Quarter: 2024Q2

REPORT INFORMATION
  Report Type: Spontaneous
  Country: US (occurrence: US)
  Receive Date: 20240521
  Receipt Date: 20240606
  Transmission Date: 20240716
  Serious: No
  Sender: FDA-Public Use
  Company Number: US-Calliditas-2024CAL00736

PATIENT
  Age: 47 Year
  Sex: Male

DRUGS (1)
  1. TARPEYO [Suspect]
     Active Substance: BUDESONIDE
     Indication: IgA nephropathy
     Route: 048
     Dates: start: 20240402, end: 20240509

REACTIONS (8)
  - Eye haemorrhage [Not Recovered/Not Resolved]
  - Seborrhoea [Recovered/Resolved]
  - Seborrhoea [Recovered/Resolved]
  - Acne [Recovered/Resolved]
  - Muscular weakness [Recovered/Resolved]
  - Joint swelling [Recovered/Resolved]
  - Peripheral swelling [Recovered/Resolved]
  - Headache [Unknown]

NARRATIVE: CASE EVENT DATE: 20240401
